FAERS Safety Report 10575485 (Version 1)
Quarter: 2014Q4

REPORT INFORMATION
  Report Type: Spontaneous
  Country: IT (occurrence: None)
  Receive Date: 20141107
  Receipt Date: 20141107
  Transmission Date: 20150529
  Serious: Yes (Death)
  Sender: FDA-Public Use
  Company Number: 2606191

PATIENT
  Age: 66 Year
  Sex: Male

DRUGS (3)
  1. CISPLATIN. [Suspect]
     Active Substance: CISPLATIN
     Indication: LARGE CELL LUNG CANCER
     Dosage: 1 DF DOSAGE FORM, CYCLICAL, INTRAVENOUS
     Route: 042
  2. AVASTIN [Suspect]
     Active Substance: BEVACIZUMAB
     Indication: LARGE CELL LUNG CANCER
     Dosage: 7.5 MG/KG MILLIGRAM(S)/KILOGRAM (CYCLICAL)
     Route: 042
  3. GEMCITABINE HYDROCHLORIDE. [Suspect]
     Active Substance: GEMCITABINE HYDROCHLORIDE
     Indication: LARGE CELL LUNG CANCER
     Dosage: 1 DF DOSAGE FORM, CYCLICAL, INTRAVENOUS
     Route: 042

REACTIONS (1)
  - Haemolysis [None]
